FAERS Safety Report 14559597 (Version 1)
Quarter: 2018Q1

REPORT INFORMATION
  Report Type: Spontaneous
  Country: US (occurrence: US)
  Receive Date: 20180221
  Receipt Date: 20180221
  Transmission Date: 20180509
  Serious: Yes (Death)
  Sender: FDA-Public Use
  Company Number: US-SHIRE-US201806591

PATIENT
  Age: 55 Year
  Sex: Male

DRUGS (1)
  1. ADVATE [Suspect]
     Active Substance: ANTIHEMOPHILIC FACTOR, HUMAN RECOMBINANT
     Indication: FACTOR VIII DEFICIENCY
     Dosage: 4000 IU, 3X A WEEK
     Route: 042
     Dates: start: 2004

REACTIONS (2)
  - Head injury [Fatal]
  - Fall [Fatal]

NARRATIVE: CASE EVENT DATE: 20180216
